FAERS Safety Report 12378736 (Version 2)
Quarter: 2016Q3

REPORT INFORMATION
  Report Type: Spontaneous
  Country: IE (occurrence: IE)
  Receive Date: 20160517
  Receipt Date: 20160719
  Transmission Date: 20161109
  Serious: Yes (Hospitalization, Other)
  Sender: FDA-Public Use
  Company Number: IE-JNJFOC-20160511750

PATIENT
  Age: 47 Year
  Sex: Female

DRUGS (1)
  1. PALIPERIDONE PALMITATE [Suspect]
     Active Substance: PALIPERIDONE PALMITATE
     Indication: PRODUCT USED FOR UNKNOWN INDICATION
     Route: 030

REACTIONS (1)
  - Pulmonary embolism [Unknown]

NARRATIVE: CASE EVENT DATE: 20160421
